FAERS Safety Report 25793110 (Version 2)
Quarter: 2025Q3

REPORT INFORMATION
  Report Type: Report from Study
  Country: EU (occurrence: EU)
  Receive Date: 20250911
  Receipt Date: 20250925
  Transmission Date: 20251021
  Serious: Yes (Death, Life-Threatening)
  Sender: ABBVIE
  Company Number: EU-ABBVIE-6454205

PATIENT
  Age: 74 Year
  Sex: Female
  Weight: 35 kg

DRUGS (2)
  1. CARBIDOPA\LEVODOPA [Suspect]
     Active Substance: CARBIDOPA\LEVODOPA
     Indication: Parkinson^s disease
     Route: 050
     Dates: end: 20250908
  2. CARBIDOPA\LEVODOPA [Suspect]
     Active Substance: CARBIDOPA\LEVODOPA

REACTIONS (7)
  - Cardiopulmonary failure [Fatal]
  - Abdominal pain upper [Unknown]
  - Cardiac disorder [Unknown]
  - Decreased appetite [Recovered/Resolved]
  - Myocardial infarction [Unknown]
  - Weight decreased [Unknown]
  - Constipation [Recovered/Resolved]

NARRATIVE: CASE EVENT DATE: 20250101
